FAERS Safety Report 7715764-9 (Version None)
Quarter: 2011Q3

REPORT INFORMATION
  Report Type: 
  Country: None (occurrence: None)
  Receive Date: 20110829
  Receipt Date: 20110819
  Transmission Date: 20111222
  Serious: Yes (Hospitalization)
  Sender: FDA-Public Use
  Company Number: MY-SANOFI-AVENTIS-2011SA050492

PATIENT
  Age: 41 Year
  Sex: Male
  Weight: 42.8 kg

DRUGS (5)
  1. PYRAZINAMIDE [Suspect]
     Indication: PULMONARY TUBERCULOSIS
     Route: 065
     Dates: start: 20110613
  2. RIFAMPICIN [Suspect]
     Indication: PULMONARY TUBERCULOSIS
     Route: 065
     Dates: start: 20110613
  3. BLINDED THERAPY [Suspect]
     Route: 065
     Dates: start: 20110613
  4. BLINDED THERAPY [Suspect]
     Route: 065
     Dates: start: 20110613
  5. BLINDED THERAPY [Suspect]
     Indication: PULMONARY TUBERCULOSIS
     Route: 065
     Dates: start: 20110613

REACTIONS (2)
  - EPILEPSY [None]
  - MUSCULAR WEAKNESS [None]
